FAERS Safety Report 7376544-X (Version None)
Quarter: 2011Q1

REPORT INFORMATION
  Report Type: 
  Country: None (occurrence: None)
  Receive Date: 20110325
  Receipt Date: 20110315
  Transmission Date: 20110831
  Serious: Yes (Hospitalization)
  Sender: FDA-Public Use
  Company Number: JP-ROCHE-765842

PATIENT
  Sex: Female

DRUGS (42)
  1. TOCILIZUMAB [Suspect]
     Route: 041
     Dates: start: 20081015, end: 20081015
  2. TOCILIZUMAB [Suspect]
     Route: 041
     Dates: start: 20081113, end: 20081113
  3. TOCILIZUMAB [Suspect]
     Route: 041
     Dates: start: 20090730, end: 20090730
  4. TOCILIZUMAB [Suspect]
     Route: 041
     Dates: start: 20100210, end: 20100210
  5. ACINON [Concomitant]
     Dosage: FORM: PERORAL AGENT
     Route: 048
  6. TOCILIZUMAB [Suspect]
     Route: 041
     Dates: start: 20090408, end: 20090408
  7. TOCILIZUMAB [Suspect]
     Route: 041
     Dates: start: 20090702, end: 20090702
  8. TOCILIZUMAB [Suspect]
     Route: 041
     Dates: start: 20100311, end: 20100311
  9. TOCILIZUMAB [Suspect]
     Route: 041
     Dates: start: 20100408, end: 20100408
  10. URSO 250 [Concomitant]
     Dosage: FORM: PERORAL AGENT
     Route: 048
  11. TOCILIZUMAB [Suspect]
     Route: 041
     Dates: start: 20080820, end: 20080820
  12. TOCILIZUMAB [Suspect]
     Route: 041
     Dates: start: 20090922, end: 20090922
  13. TOCILIZUMAB [Suspect]
     Route: 041
     Dates: start: 20091119, end: 20091119
  14. TOCILIZUMAB [Suspect]
     Route: 041
     Dates: start: 20100506, end: 20100506
  15. PREDONINE [Concomitant]
     Route: 048
     Dates: start: 20100115, end: 20100626
  16. TOCILIZUMAB [Suspect]
     Route: 041
     Dates: start: 20081210, end: 20081210
  17. TOCILIZUMAB [Suspect]
     Route: 041
     Dates: start: 20090114, end: 20090114
  18. TOCILIZUMAB [Suspect]
     Route: 041
     Dates: start: 20090312, end: 20090312
  19. BLOPRESS [Concomitant]
     Route: 048
     Dates: start: 20090627, end: 20100626
  20. TOCILIZUMAB [Suspect]
     Indication: RHEUMATOID ARTHRITIS
     Route: 041
     Dates: start: 20080627, end: 20080627
  21. TOCILIZUMAB [Suspect]
     Route: 041
     Dates: start: 20090212, end: 20090212
  22. ISALON [Concomitant]
     Dosage: FORM: PERORAL AGENT
     Route: 048
  23. ACINON [Concomitant]
     Route: 048
     Dates: start: 20090627, end: 20100626
  24. FUROSEMIDE [Concomitant]
     Dosage: FORM: PERORAL AGENT
     Route: 048
  25. FUROSEMIDE [Concomitant]
     Dosage: FORM: PERORAL AGENT
     Route: 048
     Dates: start: 20090627, end: 20100626
  26. TOCILIZUMAB [Suspect]
     Route: 041
     Dates: start: 20091022, end: 20091022
  27. FERROUS CITRATE [Concomitant]
     Route: 048
  28. TOCILIZUMAB [Suspect]
     Route: 041
     Dates: start: 20080917, end: 20080917
  29. TOCILIZUMAB [Suspect]
     Route: 041
     Dates: start: 20090604, end: 20090604
  30. TOCILIZUMAB [Suspect]
     Route: 041
     Dates: start: 20090827, end: 20090827
  31. TOCILIZUMAB [Suspect]
     Route: 041
     Dates: start: 20091217, end: 20091217
  32. TOCILIZUMAB [Suspect]
     Route: 041
     Dates: start: 20100603
  33. AZULFIDINE [Concomitant]
     Dosage: FORM: ENTERIC COATED DRUG
     Route: 048
  34. DEPAS [Concomitant]
     Dosage: FORM: PERORAL AGENT
     Route: 048
  35. BLOPRESS [Concomitant]
     Route: 048
  36. TOCILIZUMAB [Suspect]
     Route: 041
     Dates: start: 20080723, end: 20080723
  37. TOCILIZUMAB [Suspect]
     Route: 041
     Dates: start: 20090507, end: 20090507
  38. TOCILIZUMAB [Suspect]
     Route: 041
     Dates: start: 20100114, end: 20100114
  39. PREDONINE [Concomitant]
     Route: 048
     Dates: end: 20091022
  40. PREDONINE [Concomitant]
     Route: 048
     Dates: start: 20091023, end: 20100114
  41. MAGMITT [Concomitant]
     Route: 048
  42. VOLTAREN [Concomitant]
     Route: 054

REACTIONS (5)
  - HYPERTENSION [None]
  - CHOLANGITIS ACUTE [None]
  - BILE DUCT STONE [None]
  - ANAEMIA [None]
  - OXYGEN SATURATION DECREASED [None]
